FAERS Safety Report 6683540-4 (Version None)
Quarter: 2010Q2

REPORT INFORMATION
  Report Type: 
  Country: None (occurrence: None)
  Receive Date: 20100415
  Receipt Date: 20100406
  Transmission Date: 20101027
  Serious: Yes (Other)
  Sender: FDA-Public Use
  Company Number: US-AMGEN-QUU356180

PATIENT
  Sex: Female

DRUGS (1)
  1. ENBREL [Suspect]
     Indication: RHEUMATOID ARTHRITIS
     Route: 058
     Dates: start: 19980101

REACTIONS (14)
  - ARTHRALGIA [None]
  - ASTHENIA [None]
  - DRUG INEFFECTIVE [None]
  - EAR PAIN [None]
  - FATIGUE [None]
  - FIBROCYSTIC BREAST DISEASE [None]
  - INJECTION SITE PAIN [None]
  - JOINT INJURY [None]
  - LIMB INJURY [None]
  - MOVEMENT DISORDER [None]
  - NODULE [None]
  - SENSORY LOSS [None]
  - SINUSITIS [None]
  - SWELLING [None]
